FAERS Safety Report 5293457-8 (Version None)
Quarter: 2007Q2

REPORT INFORMATION
  Report Type: 
  Country: None (occurrence: None)
  Receive Date: 20070411
  Receipt Date: 20070329
  Transmission Date: 20071010
  Serious: Yes (Hospitalization)
  Sender: FDA-Public Use
  Company Number: ES-SANOFI-SYNTHELABO-A01200703413

PATIENT
  Age: 71 Year
  Sex: Female

DRUGS (7)
  1. MANIDON HTA [Concomitant]
     Indication: ESSENTIAL HYPERTENSION
     Route: 048
  2. ARICEPT [Concomitant]
     Indication: DEMENTIA ALZHEIMER'S TYPE
     Dosage: UNK
     Route: 048
  3. DIGOXIN [Concomitant]
     Indication: ATRIAL FIBRILLATION
     Dosage: UNK
     Route: 065
     Dates: end: 20060130
  4. DIANBEN [Suspect]
     Indication: DIABETES MELLITUS
     Dosage: UNK
     Route: 048
     Dates: end: 20060129
  5. DEPRAX [Suspect]
     Indication: DRUG USE FOR UNKNOWN INDICATION
     Dosage: UNK
     Route: 048
     Dates: end: 20060129
  6. ISCOVER [Suspect]
     Indication: DRUG USE FOR UNKNOWN INDICATION
     Route: 048
     Dates: end: 20060129
  7. NOVODORM [Suspect]
     Indication: DIABETES MELLITUS
     Dosage: UNK
     Route: 048
     Dates: end: 20060129

REACTIONS (3)
  - HEPATIC NECROSIS [None]
  - HEPATITIS [None]
  - HYPERGLYCAEMIA [None]
